FAERS Safety Report 14954019 (Version 21)
Quarter: 2018Q4

REPORT INFORMATION
  Report Type: Report from Study
  Country: US (occurrence: DE)
  Receive Date: 20180530
  Receipt Date: 20181108
  Transmission Date: 20190204
  Serious: Yes (Death, Life-Threatening, Hospitalization, Other)
  Sender: FDA-Public Use
  Company Number: US-PFIZER INC-2003041703

PATIENT
  Age: 73 Year
  Sex: Female
  Weight: 69 kg

DRUGS (61)
  1. METHYLPREDNISOLONE SODIUM SUCCINATE. [Suspect]
     Active Substance: METHYLPREDNISOLONE SODIUM SUCCINATE
     Indication: DYSPNOEA
  2. ROCEPHIN [Suspect]
     Active Substance: CEFTRIAXONE SODIUM
     Indication: PYREXIA
  3. ASPIRIN. [Suspect]
     Active Substance: ASPIRIN
     Indication: CORONARY ARTERY DISEASE
     Dosage: 100 MG, QD
     Route: 048
     Dates: start: 20010616, end: 20010714
  4. MOLSIDOMINE [Suspect]
     Active Substance: MOLSIDOMINE
     Indication: CORONARY ARTERY DISEASE
     Dosage: 16 MG, Q12H
     Route: 048
     Dates: start: 20010703, end: 20010714
  5. METOCLOPRAMIDE HYDROCHLORIDE. [Suspect]
     Active Substance: METOCLOPRAMIDE HYDROCHLORIDE
     Indication: CORONARY ARTERY DISEASE
     Dosage: 7 MG, EVERY 9 DAYS
     Route: 048
     Dates: start: 20010704, end: 20010712
  6. PERENTEROL [Suspect]
     Active Substance: SACCHAROMYCES CEREVISIAE
     Indication: DIARRHOEA
     Dosage: 300 MG, 1X/DAY
     Route: 048
     Dates: start: 20010711, end: 20010714
  7. NOVODIGAL (.BETA.-ACETYLDIGOXIN) [Suspect]
     Active Substance: .BETA.-ACETYLDIGOXIN
     Indication: CORONARY ARTERY DISEASE
     Dosage: 0.2 MG, QD
     Route: 048
     Dates: start: 20010703, end: 20010714
  8. NOVODIGAL (.BETA.-ACETYLDIGOXIN) [Suspect]
     Active Substance: .BETA.-ACETYLDIGOXIN
     Dosage: 0.3 MG, QD
     Route: 048
     Dates: end: 20010714
  9. ACETYLDIGOXIN [Suspect]
     Active Substance: .BETA.-ACETYLDIGOXIN
     Indication: CORONARY ARTERY DISEASE
     Dosage: 1 DF, UNK
     Route: 048
     Dates: start: 20010703
  10. PANTOZOL [Suspect]
     Active Substance: PANTOPRAZOLE SODIUM
     Dosage: 40 MG, QD
     Route: 048
     Dates: start: 20010616, end: 20010714
  11. DIAZEPAM. [Suspect]
     Active Substance: DIAZEPAM
     Dosage: 5 MG, UNK
     Route: 048
     Dates: start: 20010616, end: 20010703
  12. ZAROXOLYN [Suspect]
     Active Substance: METOLAZONE
     Indication: HYPERTENSION
     Dosage: 2 MG, QD
     Route: 048
     Dates: start: 20010712, end: 20010713
  13. CAPTOPRIL. [Suspect]
     Active Substance: CAPTOPRIL
     Indication: CORONARY ARTERY DISEASE
     Dosage: 1 DF, UNK (1 DF, EVERY 29 DAYS 1MOL/ML)
     Route: 048
     Dates: start: 20010616, end: 20010714
  14. LANTUS [Suspect]
     Active Substance: INSULIN GLARGINE
     Indication: DIABETES MELLITUS
     Dosage: 16 IU, QD
     Route: 058
     Dates: start: 20010616, end: 20010629
  15. POTASSIUM CHLORIDE. [Suspect]
     Active Substance: POTASSIUM CHLORIDE
     Indication: ELECTROLYTE IMBALANCE
     Dosage: 1500 MG, EVERY 12 HOURS
     Route: 048
     Dates: start: 20010703, end: 20010714
  16. BROMAZEPAM [Concomitant]
     Active Substance: BROMAZEPAM
     Dosage: UNK
     Dates: start: 20010713, end: 20010714
  17. POTASSIUM [Concomitant]
     Active Substance: POTASSIUM
     Indication: ELECTROLYTE IMBALANCE
     Dosage: 1500 MG, UNK
     Route: 048
     Dates: start: 20010703, end: 20010714
  18. CIPROFLOXACIN HCL [Suspect]
     Active Substance: CIPROFLOXACIN HYDROCHLORIDE
     Dosage: 500 MG, DAILY
     Route: 048
     Dates: start: 20010710, end: 20010711
  19. AMPHOTERICIN B. [Suspect]
     Active Substance: AMPHOTERICIN B
     Indication: ANTIFUNGAL PROPHYLAXIS
     Dosage: 8 DF, QD
     Route: 048
     Dates: start: 20010703, end: 20010714
  20. YEAST DRIED [Suspect]
     Active Substance: YEAST
     Indication: DIARRHOEA
     Dosage: 300 MG, UNK
     Route: 048
     Dates: start: 20010711, end: 20010714
  21. AMARYL [Suspect]
     Active Substance: GLIMEPIRIDE
     Indication: DIABETES MELLITUS
     Dosage: 3 MG, EVERY 18 DAYS
     Route: 048
     Dates: start: 20010616, end: 20010703
  22. HALDOL [Suspect]
     Active Substance: HALOPERIDOL
     Indication: RESTLESSNESS
     Dosage: 3 GTT, QD
     Route: 048
     Dates: start: 20010713, end: 20010714
  23. RAMIPRIL. [Suspect]
     Active Substance: RAMIPRIL
     Dosage: 10 MG, QD
     Route: 048
     Dates: start: 20010616, end: 20010714
  24. RAMIPRIL. [Suspect]
     Active Substance: RAMIPRIL
     Dosage: 5 UNK, UNK
     Route: 048
     Dates: start: 20010616, end: 20010714
  25. FRAGMIN [Suspect]
     Active Substance: DALTEPARIN SODIUM
     Indication: THROMBOSIS PROPHYLAXIS
     Dosage: 2500 IU, EVERY 12 DAYS
     Route: 058
     Dates: start: 20010703, end: 20010714
  26. TRANXENE [Suspect]
     Active Substance: CLORAZEPATE DIPOTASSIUM
     Indication: RESTLESSNESS
     Dosage: 10 MG, 1X/DAY
     Route: 048
     Dates: start: 20010710, end: 20010714
  27. AMPHOTERICIN B. [Suspect]
     Active Substance: AMPHOTERICIN B
     Indication: CANDIDA INFECTION
  28. IRENAT [Suspect]
     Active Substance: SODIUM PERCHLORATE
     Indication: HYPERTHYROIDISM
     Dosage: 688 MG
     Route: 048
     Dates: start: 20010618, end: 20010714
  29. HALDOL [Suspect]
     Active Substance: HALOPERIDOL
     Dosage: UNK UNK, QD
     Route: 048
     Dates: start: 20010713, end: 20010714
  30. INSULIN GLARGINE [Concomitant]
     Active Substance: INSULIN GLARGINE
     Indication: DIABETES MELLITUS
     Dosage: 16 IU, 1X/DAY
     Dates: end: 20010629
  31. METFORMIN HCL [Suspect]
     Active Substance: METFORMIN HYDROCHLORIDE
     Indication: CORONARY ARTERY DISEASE
     Dosage: 7 MG, UNK
     Route: 048
  32. CIPROFLOXACIN HCL [Suspect]
     Active Substance: CIPROFLOXACIN HYDROCHLORIDE
     Indication: CHOLECYSTITIS
     Dosage: 1000 MG, DAILY
     Route: 048
     Dates: start: 20010620, end: 20010628
  33. METHYLPREDNISOLONE SODIUM SUCCINATE. [Suspect]
     Active Substance: METHYLPREDNISOLONE SODIUM SUCCINATE
     Indication: DYSPNOEA
     Dosage: 50 MG, 1X/DAY
     Route: 042
     Dates: start: 20010703, end: 20010703
  34. LASIX [Suspect]
     Active Substance: FUROSEMIDE
     Indication: HYPERTENSION
     Dosage: 120 MG, DAILY
     Route: 042
     Dates: start: 20010703, end: 20010714
  35. DIGOXIN. [Suspect]
     Active Substance: DIGOXIN
     Indication: CORONARY ARTERY DISEASE
     Dosage: 0.4 MG, DAILY
     Route: 048
     Dates: start: 20010703, end: 20010714
  36. CONCOR [Suspect]
     Active Substance: BISOPROLOL FUMARATE
     Indication: CORONARY ARTERY DISEASE
     Dosage: 8 MG, EVERY 29 DAYS
     Route: 048
     Dates: start: 20010616, end: 20010714
  37. CONCOR [Suspect]
     Active Substance: BISOPROLOL FUMARATE
     Dosage: 5 MG, QD
     Route: 048
     Dates: start: 20010714, end: 20010714
  38. LEXOTANIL [Concomitant]
     Active Substance: BROMAZEPAM
     Indication: RESTLESSNESS
     Dosage: 2 MG, UNK
     Route: 048
     Dates: start: 20010713, end: 20010714
  39. ATORVASTATIN CALCIUM. [Concomitant]
     Active Substance: ATORVASTATIN CALCIUM
     Indication: HYPERLIPIDAEMIA
     Dosage: 20 MG, 1X/DAY
     Route: 048
     Dates: start: 20010703
  40. NORVASC [Suspect]
     Active Substance: AMLODIPINE BESYLATE
     Indication: CORONARY ARTERY DISEASE
     Dosage: 5 MG, 2X/DAY
     Route: 048
     Dates: start: 20010703, end: 20010714
  41. RAMIPRIL. [Suspect]
     Active Substance: RAMIPRIL
     Indication: CORONARY ARTERY DISEASE
     Dosage: 5 MG, QD
     Route: 048
     Dates: start: 20010616, end: 20010714
  42. METFORMIN HCL [Suspect]
     Active Substance: METFORMIN HYDROCHLORIDE
     Indication: DIABETES MELLITUS
     Dosage: 250 MG, UNK
     Route: 048
     Dates: start: 20010616, end: 20010714
  43. ROCEPHIN [Suspect]
     Active Substance: CEFTRIAXONE SODIUM
     Indication: PYREXIA
     Dosage: 1 G, BID
     Route: 042
     Dates: start: 20010629, end: 20010703
  44. DIAZEPAM. [Suspect]
     Active Substance: DIAZEPAM
     Indication: RESTLESSNESS
     Dosage: 15 MG, UNK
     Route: 048
     Dates: start: 20010616, end: 20010703
  45. MOLSIDOMINE [Suspect]
     Active Substance: MOLSIDOMINE
     Indication: NAUSEA
     Dosage: 8 MG, 1X/DAY
     Route: 048
     Dates: start: 20010703, end: 20010714
  46. PLAVIX [Suspect]
     Active Substance: CLOPIDOGREL BISULFATE
     Indication: CORONARY ARTERY DISEASE
     Dosage: 75 MG, 1X/DAY
     Route: 048
     Dates: start: 20010704, end: 20010714
  47. DECORTIN [Suspect]
     Active Substance: PREDNISONE
     Indication: DYSPNOEA
     Dosage: 50 MG, 1X/DAY
     Route: 042
     Dates: start: 20010703, end: 20010703
  48. CARBIMAZOLE [Suspect]
     Active Substance: CARBIMAZOLE
     Indication: HYPERTHYROIDISM
     Dosage: 30 MG, 1X/DAY
     Route: 048
     Dates: start: 20010621, end: 20010714
  49. HALDOL [Suspect]
     Active Substance: HALOPERIDOL
     Dosage: UNK
     Route: 048
     Dates: start: 20010713, end: 20010713
  50. HEPARIN SODIUM. [Concomitant]
     Active Substance: HEPARIN SODIUM
     Dosage: UNK
     Route: 058
     Dates: start: 20010703, end: 20010714
  51. SORTIS [Suspect]
     Active Substance: ATORVASTATIN
     Indication: HYPERLIPIDAEMIA
     Dosage: 20 MG, DAILY
     Route: 048
     Dates: start: 20010616, end: 20010703
  52. ZAROXOLYN [Suspect]
     Active Substance: METOLAZONE
     Dosage: 2 MG, UNK
     Route: 048
     Dates: start: 20010712, end: 20010713
  53. DECORTIN [Suspect]
     Active Substance: PREDNISONE
     Dosage: 50 MG, UNK
  54. PANTOZOL [Suspect]
     Active Substance: PANTOPRAZOLE SODIUM
     Indication: PROPHYLAXIS
     Dosage: 80 MG, QD
     Route: 048
     Dates: start: 20010616
  55. MONO MACK [Suspect]
     Active Substance: ISOSORBIDE MONONITRATE
     Indication: CORONARY ARTERY DISEASE
     Dosage: UNK UNK, QD
     Route: 048
     Dates: start: 20010703, end: 20010714
  56. TRANXENE [Suspect]
     Active Substance: CLORAZEPATE DIPOTASSIUM
     Indication: RESTLESSNESS
     Dosage: UNK
     Route: 048
  57. PARACETAMOL [Suspect]
     Active Substance: ACETAMINOPHEN
     Indication: PAIN
     Dosage: 500 MG, 1X/DAY
     Route: 048
     Dates: start: 20010711, end: 20010711
  58. AMPHOTERICIN B. [Suspect]
     Active Substance: AMPHOTERICIN B
     Indication: PROPHYLAXIS
     Dosage: 200 MG, 1X/DAY
     Route: 048
     Dates: start: 20010703, end: 20010714
  59. EUNERPAN [Suspect]
     Active Substance: MELPERONE HYDROCHLORIDE
     Indication: RESTLESSNESS
     Dosage: 105 MG, 1X/DAY
     Route: 048
     Dates: start: 20010706, end: 20010712
  60. BISOPROLOL FUMARATE. [Concomitant]
     Active Substance: BISOPROLOL FUMARATE
     Indication: CORONARY ARTERY DISEASE
     Dosage: 5 MG, QD
     Route: 048
     Dates: end: 20010714
  61. SODIUM PERCHLORATE [Concomitant]
     Active Substance: SODIUM PERCHLORATE
     Dosage: 688 MG, UNK
     Route: 048
     Dates: start: 20010618, end: 20010714

REACTIONS (19)
  - Lung disorder [Fatal]
  - Nausea [Fatal]
  - Restlessness [Fatal]
  - Diarrhoea [Fatal]
  - Pyrexia [Unknown]
  - Multiple organ dysfunction syndrome [Fatal]
  - Respiratory disorder [Fatal]
  - Blister [Fatal]
  - Erythema [Fatal]
  - Electrolyte imbalance [Fatal]
  - Toxic epidermal necrolysis [Fatal]
  - Condition aggravated [Fatal]
  - Cholelithiasis [Fatal]
  - Coronary artery disease [Unknown]
  - Cholecystitis [Fatal]
  - Hyperthyroidism [Fatal]
  - Dyspnoea [Unknown]
  - Hypertension [Unknown]
  - Pain [Unknown]

NARRATIVE: CASE EVENT DATE: 20010629
